FAERS Safety Report 9815376 (Version 2)
Quarter: 2014Q1

REPORT INFORMATION
  Report Type: Report from Study
  Country: DE (occurrence: DE)
  Receive Date: 20140114
  Receipt Date: 20140206
  Transmission Date: 20141002
  Serious: Yes (Death)
  Sender: FDA-Public Use
  Company Number: DE-BEH-2014040039

PATIENT
  Age: 73 Year
  Sex: Male
  Weight: 71 kg

DRUGS (5)
  1. PRIVIGEN [Suspect]
     Indication: PLASMA CELL MYELOMA
     Dosage: INFUSION RATE MIN/MAX: 1.66 ML/MIN
     Route: 042
     Dates: start: 20130207, end: 20130207
  2. PRIVIGEN [Suspect]
     Dosage: INFUSION RATE MIN/MAX: 1.66 ML/MIN
     Route: 042
     Dates: start: 20130307, end: 20130307
  3. CORTICOID [Concomitant]
  4. H2 BLOCKER [Concomitant]
  5. FLUCONAZOL [Concomitant]

REACTIONS (3)
  - Myocarditis [Fatal]
  - Pericardial effusion [Fatal]
  - Infection [Unknown]
